FAERS Safety Report 25060655 (Version 1)
Quarter: 2025Q1

REPORT INFORMATION
  Report Type: Report from Study
  Country: CA (occurrence: CA)
  Receive Date: 20250310
  Receipt Date: 20250310
  Transmission Date: 20250409
  Serious: Yes (Other)
  Sender: PFIZER
  Company Number: CA-PFIZER INC-202500051056

PATIENT
  Age: 44 Year
  Sex: Female

DRUGS (13)
  1. MIDAZOLAM [Interacting]
     Active Substance: MIDAZOLAM
     Route: 065
  2. FENTANYL [Interacting]
     Active Substance: FENTANYL
     Route: 065
  3. WAKIX [Interacting]
     Active Substance: PITOLISANT HYDROCHLORIDE
     Indication: Hypersomnia
     Route: 048
  4. WAKIX [Interacting]
     Active Substance: PITOLISANT HYDROCHLORIDE
     Route: 048
  5. WAKIX [Interacting]
     Active Substance: PITOLISANT HYDROCHLORIDE
     Route: 048
  6. ALVESCO [Concomitant]
     Active Substance: CICLESONIDE
  7. AMLODIPINE [Concomitant]
     Active Substance: AMLODIPINE BESYLATE
     Route: 065
  8. FLUTICASONE FUROATE\VILANTEROL TRIFENATATE [Concomitant]
     Active Substance: FLUTICASONE FUROATE\VILANTEROL TRIFENATATE
  9. MODAFINIL [Concomitant]
     Active Substance: MODAFINIL
  10. PREGABALIN [Concomitant]
     Active Substance: PREGABALIN
  11. PULMICORT TURBUHALER [Concomitant]
     Active Substance: BUDESONIDE
  12. SUNOSI [Concomitant]
     Active Substance: SOLRIAMFETOL
  13. TERBUTALINE [Concomitant]
     Active Substance: TERBUTALINE

REACTIONS (16)
  - Drug interaction [Unknown]
  - Anxiety [Unknown]
  - Coordination abnormal [Unknown]
  - Dizziness [Unknown]
  - Fear of surgery [Unknown]
  - Headache [Unknown]
  - Hypoaesthesia [Unknown]
  - Irritability [Unknown]
  - Loss of consciousness [Unknown]
  - Memory impairment [Unknown]
  - Myalgia [Unknown]
  - Panic attack [Unknown]
  - Seizure [Unknown]
  - Skin discolouration [Unknown]
  - Speech disorder [Unknown]
  - Off label use [Unknown]
